FAERS Safety Report 7581143-0 (Version None)
Quarter: 2011Q2

REPORT INFORMATION
  Report Type: 
  Country: None (occurrence: None)
  Receive Date: 20110629
  Receipt Date: 20110620
  Transmission Date: 20111010
  Serious: Yes (Hospitalization)
  Sender: FDA-Public Use
  Company Number: FR-PFIZER INC-2011135128

PATIENT
  Age: 56 Year
  Sex: Male
  Weight: 60 kg

DRUGS (7)
  1. IRINOTECAN HCL [Suspect]
     Indication: GASTRIC CANCER
     Dosage: 330 UNK, CYCLIC
     Dates: start: 20091012, end: 20091123
  2. LEUCOVORIN CALCIUM [Suspect]
     Indication: GASTRIC CANCER
     Dosage: 740 UNK, CYCLIC
     Dates: start: 20091012, end: 20091123
  3. PIPERACILLIN AND TAZOBACTAM [Concomitant]
     Indication: PYREXIA
     Dosage: 4 G, 3X/DAY
     Route: 042
     Dates: start: 20100310, end: 20100319
  4. ACETAMINOPHEN [Concomitant]
     Dosage: 1 G, 3X/DAY
     Route: 042
     Dates: start: 20100220, end: 20100329
  5. FLUOROURACIL [Suspect]
     Indication: GASTRIC CANCER
     Dosage: 1840 UNK, CYCLIC
     Dates: start: 20091214, end: 20100115
  6. VIREAD [Concomitant]
     Dosage: 1 DF, 1X/DAY
     Route: 048
     Dates: start: 20090923
  7. LOVENOX [Concomitant]
     Dosage: 40 MG, 1X/DAY
     Route: 058
     Dates: start: 20100220, end: 20100329

REACTIONS (1)
  - ANASTOMOTIC FISTULA [None]
